FAERS Safety Report 13386265 (Version 2)
Quarter: 2020Q4

REPORT INFORMATION
  Report Type: Other
  Country: CA (occurrence: CA)
  Receive Date: 20170330
  Receipt Date: 20201012
  Transmission Date: 20210113
  Serious: Yes (Hospitalization, Disabling)
  Sender: FDA-Public Use
  Company Number: CA-APOTEX-2017AP008706

PATIENT
  Age: 65 Year
  Sex: Female

DRUGS (2)
  1. CELECOXIB. [Suspect]
     Active Substance: CELECOXIB
     Indication: ARTHRITIS
     Dosage: 200 MG, QD
     Route: 048
  2. CELECOXIB. [Suspect]
     Active Substance: CELECOXIB
     Dosage: UNK, BID
     Route: 048

REACTIONS (7)
  - Product use in unapproved indication [Unknown]
  - Eye swelling [Unknown]
  - Sinus congestion [Unknown]
  - Off label use [Unknown]
  - Vision blurred [Unknown]
  - Vitreous floaters [Unknown]
  - Photopsia [Unknown]
